FAERS Safety Report 25935230 (Version 1)
Quarter: 2025Q4

REPORT INFORMATION
  Report Type: Spontaneous
  Country: JP (occurrence: JP)
  Receive Date: 20251017
  Receipt Date: 20251017
  Transmission Date: 20260118
  Serious: Yes (Death, Hospitalization, Other)
  Sender: Medicap Laboratories
  Company Number: JP-Medicap-000085

PATIENT
  Age: 37 Year
  Sex: Male

DRUGS (2)
  1. LITHIUM [Suspect]
     Active Substance: LITHIUM
     Indication: Bipolar disorder
     Route: 065
  2. QUETIAPINE [Suspect]
     Active Substance: QUETIAPINE
     Indication: Bipolar disorder
     Route: 065

REACTIONS (3)
  - Eosinophilic myocarditis [Fatal]
  - Cardiac failure chronic [Fatal]
  - Drug reaction with eosinophilia and systemic symptoms [Fatal]
